FAERS Safety Report 6557886-4 (Version None)
Quarter: 2010Q1

REPORT INFORMATION
  Report Type: 
  Country: None (occurrence: None)
  Receive Date: 20100129
  Receipt Date: 20100120
  Transmission Date: 20100710
  Serious: Yes (Other)
  Sender: FDA-Public Use
  Company Number: BR-ABBOTT-10P-020-0620594-00

PATIENT
  Age: 4 Year
  Sex: Male

DRUGS (4)
  1. DEPAKENE [Suspect]
     Indication: CONVULSION
     Route: 048
     Dates: start: 20040101, end: 20070101
  2. DEPAKENE [Suspect]
     Route: 048
     Dates: start: 20070101, end: 20090701
  3. PURAN T4 [Suspect]
     Indication: HYPOTHYROIDISM
     Route: 048
     Dates: start: 20070101, end: 20090701
  4. PURAN T4 [Suspect]
     Route: 048
     Dates: start: 20090801

REACTIONS (14)
  - AFFECT LABILITY [None]
  - AGGRESSION [None]
  - AGITATION [None]
  - APATHY [None]
  - DECREASED INTEREST [None]
  - DRUG ADMINISTRATION ERROR [None]
  - DRUG INEFFECTIVE [None]
  - FEAR [None]
  - HYPERHIDROSIS [None]
  - IRRITABILITY [None]
  - NERVOUSNESS [None]
  - PERSONALITY DISORDER [None]
  - TREMOR [None]
  - WEIGHT DECREASED [None]
